FAERS Safety Report 15757440 (Version 2)
Quarter: 2019Q1

REPORT INFORMATION
  Report Type: Not Available
  Country: US (occurrence: US)
  Receive Date: 20181224
  Receipt Date: 20190104
  Transmission Date: 20190417
  Serious: Yes (Death, Hospitalization, Other)
  Sender: FDA-Public Use
  Company Number: US-NEUROCRINE BIOSCIENCES INC.-2018NBI03607

PATIENT
  Sex: Male

DRUGS (4)
  1. FOLIC ACID. [Concomitant]
     Active Substance: FOLIC ACID
     Dosage: IN THE DAYTIME
  2. INGREZZA [Suspect]
     Active Substance: VALBENAZINE
     Indication: TARDIVE DYSKINESIA
     Dosage: SOMETIMES ONLY TAKE HALF A TABLET OR SKIP THE DOSE
     Route: 048
     Dates: start: 201804, end: 20181202
  3. LUMIGAN [Concomitant]
     Active Substance: BIMATOPROST
     Indication: CATARACT
     Dosage: 1 DROP IN HIS LEFT EYE AT NIGHT
     Route: 047
  4. COMBIGAN [Concomitant]
     Active Substance: BRIMONIDINE TARTRATE\TIMOLOL MALEATE
     Dosage: IN BOTH EYES EVERY MORNING AND NIGHT
     Route: 047

REACTIONS (5)
  - Hypotension [Unknown]
  - Somnolence [Unknown]
  - Dyspnoea [Fatal]
  - Cough [Unknown]
  - Asthenia [Unknown]

NARRATIVE: CASE EVENT DATE: 2018
